FAERS Safety Report 9342160 (Version 1)
Quarter: 2013Q2

REPORT INFORMATION
  Report Type: Spontaneous
  Country: DE (occurrence: DE)
  Receive Date: 20130611
  Receipt Date: 20130611
  Transmission Date: 20140414
  Serious: Yes (Hospitalization, Other)
  Sender: FDA-Public Use
  Company Number: DE-UCBSA-078964

PATIENT
  Sex: Female

DRUGS (1)
  1. VIMPAT [Suspect]
     Route: 042

REACTIONS (2)
  - Thrombocytopenia [Unknown]
  - Cardiac failure [Unknown]
